FAERS Safety Report 24230814 (Version 1)
Quarter: 2024Q3

REPORT INFORMATION
  Report Type: Spontaneous
  Country: US (occurrence: US)
  Receive Date: 20240821
  Receipt Date: 20240821
  Transmission Date: 20241016
  Serious: Yes (Other)
  Sender: AMGEN
  Company Number: US-AMGEN-USASP2024159755

PATIENT
  Age: 12 Year
  Sex: Male

DRUGS (5)
  1. PREDNISONE [Suspect]
     Active Substance: PREDNISONE
     Indication: T-cell type acute leukaemia
     Dosage: UNK
     Route: 065
  2. VINCRISTINE [Concomitant]
     Active Substance: VINCRISTINE
     Dosage: UNK
     Route: 065
  3. DEXAMETHASONE [Concomitant]
     Active Substance: DEXAMETHASONE
  4. PEG/L-ASPARAGINASE [Concomitant]
     Active Substance: PEGASPARGASE
     Route: 065
  5. DAUNORUBICIN [Concomitant]
     Active Substance: DAUNORUBICIN
     Route: 065

REACTIONS (14)
  - Optic nerve disorder [Recovered/Resolved]
  - Viral haemorrhagic cystitis [Recovered/Resolved]
  - Clostridium difficile colitis [Recovered/Resolved]
  - Thrombocytopenia [Recovered/Resolved]
  - Acute graft versus host disease in intestine [Recovered/Resolved]
  - Subretinal fluid [Recovered/Resolved]
  - Visual pathway disorder [Recovered/Resolved]
  - Papilloedema [Recovered/Resolved]
  - Oral herpes [Recovered/Resolved]
  - Extraocular muscle disorder [Recovered/Resolved]
  - Hepatosplenomegaly [Unknown]
  - Petechiae [Unknown]
  - Lymphadenopathy [Unknown]
  - Conjunctival haemorrhage [Unknown]
